FAERS Safety Report 16975337 (Version 1)
Quarter: 2019Q4

REPORT INFORMATION
  Report Type: Spontaneous
  Country: FR (occurrence: FR)
  Receive Date: 20191030
  Receipt Date: 20191030
  Transmission Date: 20200122
  Serious: Yes (Hospitalization, Other)
  Sender: FDA-Public Use
  Company Number: FR-SA-2019SA295286

PATIENT
  Age: 39 Year
  Sex: Male
  Weight: 71.8 kg

DRUGS (4)
  1. INSULIN GLARGINE [Suspect]
     Active Substance: INSULIN GLARGINE
     Indication: TYPE 1 DIABETES MELLITUS
     Dosage: 26 IU, QD (IN THE MORNING)
     Route: 058
     Dates: start: 20190905
  2. FIASP [Suspect]
     Active Substance: INSULIN ASPART
     Indication: TYPE 1 DIABETES MELLITUS
     Dosage: 18 IU, QD (6 IU MORNING, NOON, EVENING)
     Route: 058
     Dates: start: 20190905
  3. UMULINE [Suspect]
     Active Substance: INSULIN HUMAN
     Indication: TYPE 1 DIABETES MELLITUS
     Dosage: 5 IU, QH
     Route: 042
     Dates: start: 20190902, end: 20190905
  4. LOVENOX [Suspect]
     Active Substance: ENOXAPARIN SODIUM
     Indication: THROMBOSIS PROPHYLAXIS
     Dosage: 4000 IU, QD (1-0-0)
     Route: 058
     Dates: start: 20190902, end: 20190907

REACTIONS (2)
  - Gamma-glutamyltransferase increased [Recovering/Resolving]
  - Hepatitis [Recovering/Resolving]

NARRATIVE: CASE EVENT DATE: 20190903
